FAERS Safety Report 19801356 (Version 1)
Quarter: 2021Q3

REPORT INFORMATION
  Report Type: Spontaneous
  Country: GB (occurrence: GB)
  Receive Date: 20210908
  Receipt Date: 20210908
  Transmission Date: 20211014
  Serious: Yes (Other)
  Sender: FDA-Public Use
  Company Number: GB-B.BRAUN MEDICAL INC.-2118096

PATIENT
  Age: 20 Year
  Sex: Female

DRUGS (2)
  1. CITALOPRAM [Concomitant]
     Active Substance: CITALOPRAM HYDROBROMIDE
  2. ACETAMINOPHEN. [Suspect]
     Active Substance: ACETAMINOPHEN
     Indication: ANALGESIC THERAPY

REACTIONS (4)
  - Vomiting [Recovered/Resolved with Sequelae]
  - Pyrexia [Unknown]
  - Panic reaction [Unknown]
  - Chills [Unknown]

NARRATIVE: CASE EVENT DATE: 20210709
